FAERS Safety Report 8947178 (Version 1)
Quarter: 2012Q4

REPORT INFORMATION
  Report Type: 
  Country: US (occurrence: US)
  Receive Date: 20121205
  Receipt Date: 20121205
  Transmission Date: 20130627
  Serious: No
  Sender: FDA-Public Use
  Company Number: US-PFIZER INC-2012300302

PATIENT
  Age: 62 Year
  Sex: Male
  Weight: 90.7 kg

DRUGS (1)
  1. VIAGRA [Suspect]
     Indication: ERECTILE DYSFUNCTION
     Dosage: as needed
     Route: 048
     Dates: start: 2007

REACTIONS (3)
  - Drug ineffective [Unknown]
  - Flushing [Recovered/Resolved]
  - Sinus congestion [Recovered/Resolved]
